FAERS Safety Report 5604567-7 (Version None)
Quarter: 2008Q1

REPORT INFORMATION
  Report Type: 
  Country: None (occurrence: None)
  Receive Date: 20080123
  Receipt Date: 20080114
  Transmission Date: 20080703
  Serious: Yes (Death)
  Sender: FDA-Public Use
  Company Number: B0502976A

PATIENT
  Age: 56 Year
  Sex: Female

DRUGS (9)
  1. DIPHENHYDRAMINE HYDROCHLORIDE [Suspect]
     Dosage: ORAL
     Route: 048
  2. FENTANYL [Suspect]
     Dosage: ORAL
     Route: 048
  3. HYDROCODONE BITARTRATE + ACETAMINOPHEN [Suspect]
     Dosage: ORAL
     Route: 048
  4. OXYCODONE HCL [Suspect]
     Dosage: ORAL
     Route: 048
  5. CARISOPRODOL (FORMULATION UNKNOWN) (CARISOPRODOL) [Suspect]
     Dosage: ORAL
     Route: 048
  6. ACETAMINOPHEN [Suspect]
     Dosage: ORAL
     Route: 048
  7. CITALOPRAM HYDROBROMIDE [Suspect]
     Dosage: ORAL
     Route: 048
  8. BUPROPION HCL [Suspect]
     Dosage: ORAL
     Route: 048
  9. TRAZODONE HCL [Concomitant]
     Dosage: ORAL
     Route: 048

REACTIONS (1)
  - DEATH [None]
